FAERS Safety Report 23654098 (Version 1)
Quarter: 2024Q1

REPORT INFORMATION
  Report Type: Report from Study
  Country: EG (occurrence: EG)
  Receive Date: 20240320
  Receipt Date: 20240320
  Transmission Date: 20240410
  Serious: Yes (Other)
  Sender: FDA-Public Use
  Company Number: EG-SANDOZ-SDZ2024EG029766

PATIENT
  Age: 7 Year
  Sex: Male
  Weight: 43 kg

DRUGS (4)
  1. OMNITROPE [Suspect]
     Active Substance: SOMATROPIN
     Indication: Growth hormone deficiency
     Dosage: 1.9 MG/DAY INC. FOR NORMAL GROWTH
     Route: 058
     Dates: start: 20210704
  2. SOMATROPIN [Suspect]
     Active Substance: SOMATROPIN
     Indication: Growth hormone deficiency
     Dosage: UNK
     Route: 065
  3. LEVOTHYROXINE [Concomitant]
     Active Substance: LEVOTHYROXINE\LEVOTHYROXINE SODIUM
     Indication: Parathyroid disorder
     Dosage: 1 TABLET/DAY DEPENDS ON THE HCP DECISION EVERY 1 OR 3 MONTHS
     Route: 048
  4. EUTHYROX [Concomitant]
     Active Substance: LEVOTHYROXINE SODIUM
     Indication: Parathyroid disorder
     Dosage: 1 TABLET/DAY DEPENDS ON THE HCP DECISION EVERY 1 OR 3 MONTHS
     Route: 048

REACTIONS (8)
  - Dizziness [Recovered/Resolved]
  - Hypothyroidism [Recovering/Resolving]
  - Hypersensitivity [Recovered/Resolved]
  - Therapeutic product effect incomplete [Recovered/Resolved]
  - Injection site pain [Recovering/Resolving]
  - Expired device used [Unknown]
  - Wrong technique in product usage process [Unknown]
  - Multiple use of single-use product [Unknown]

NARRATIVE: CASE EVENT DATE: 20210704
